FAERS Safety Report 20429553 (Version 1)
Quarter: 2022Q1

REPORT INFORMATION
  Report Type: Report from Study
  Country: FR (occurrence: FR)
  Receive Date: 20220204
  Receipt Date: 20220204
  Transmission Date: 20220423
  Serious: Yes (Hospitalization)
  Sender: FDA-Public Use
  Company Number: FR-SERVIER-S19010981

PATIENT

DRUGS (10)
  1. ONCASPAR [Suspect]
     Active Substance: PEGASPARGASE
     Indication: Acute lymphocytic leukaemia
     Dosage: 2650 IU, QD, N D4 AND D43
     Route: 042
     Dates: start: 20190719, end: 20190903
  2. DEXAMETHASONE SODIUM PHOSPHATE [Suspect]
     Active Substance: DEXAMETHASONE SODIUM PHOSPHATE
     Indication: Acute lymphocytic leukaemia
     Dosage: 10.5 MG, QD, ON D1 TO D7 AND D15 TO D21
     Route: 048
     Dates: start: 20190716, end: 20190805
  3. ADRIAMYCIN [Suspect]
     Active Substance: DOXORUBICIN HYDROCHLORIDE
     Indication: Acute lymphocytic leukaemia
     Dosage: 26.5 MG, QD, ON D1, D8 AND D15
     Route: 042
     Dates: start: 20190716, end: 20190730
  4. VINCRISTINE SULFATE [Suspect]
     Active Substance: VINCRISTINE SULFATE
     Indication: Acute lymphocytic leukaemia
     Dosage: 1.6 MG, QD, ON D1, D8, D15, D43 AND D50
     Route: 042
     Dates: start: 20190716, end: 20190910
  5. THIOGUANINE [Suspect]
     Active Substance: THIOGUANINE
     Indication: Acute lymphocytic leukaemia
     Dosage: 61.7 MG, QD, ON D29 TO D42
     Route: 048
     Dates: start: 20190820, end: 20190902
  6. CYTARABINE [Suspect]
     Active Substance: CYTARABINE
     Indication: Acute lymphocytic leukaemia
     Dosage: 30 MG, QD, ON D4 AND D31
     Route: 037
     Dates: start: 20190719, end: 20190820
  7. CYTARABINE [Suspect]
     Active Substance: CYTARABINE
     Dosage: 82 MG, QD, ON D31 TO D4 AND D38 TO D41
     Route: 042
     Dates: start: 20190822, end: 20190901
  8. CYCLOPHOSPHAMIDE [Suspect]
     Active Substance: CYCLOPHOSPHAMIDE
     Indication: Acute lymphocytic leukaemia
     Dosage: 1030 MG, QD, ON D29
     Route: 042
     Dates: start: 20190822, end: 20190822
  9. METHOTREXATE [Suspect]
     Active Substance: METHOTREXATE
     Indication: Acute lymphocytic leukaemia
     Dosage: 12 MG, QD, ON D4 AND D31
     Route: 037
     Dates: start: 20190719, end: 20190820
  10. HYDROCORTISONE [Suspect]
     Active Substance: HYDROCORTISONE
     Indication: Acute lymphocytic leukaemia
     Dosage: 15 MG, QD, ON D4 AND D31
     Route: 037
     Dates: start: 20190719, end: 20190820

REACTIONS (1)
  - Febrile bone marrow aplasia [Recovering/Resolving]

NARRATIVE: CASE EVENT DATE: 20190910
